FAERS Safety Report 20161023 (Version 1)
Quarter: 2021Q4

REPORT INFORMATION
  Report Type: Spontaneous
  Country: US (occurrence: US)
  Receive Date: 20211208
  Receipt Date: 20211208
  Transmission Date: 20220303
  Serious: No
  Sender: FDA-Public Use
  Company Number: US-MYLANLABS-2021M1079319

PATIENT
  Age: 24 Year
  Sex: Female
  Weight: 77 kg

DRUGS (2)
  1. XULANE [Suspect]
     Active Substance: ETHINYL ESTRADIOL\NORELGESTROMIN
     Indication: Contraception
     Dosage: 35/150 MICROGRAM, QD, 1 PATCH FOR 7 DAYS
     Route: 062
     Dates: start: 20211025
  2. XULANE [Suspect]
     Active Substance: ETHINYL ESTRADIOL\NORELGESTROMIN
     Dosage: 35/150 MICROGRAM, QD, 1 PATCH FOR 7 DAYS
     Route: 062
     Dates: start: 20211027

REACTIONS (2)
  - Product adhesion issue [Not Recovered/Not Resolved]
  - Product residue present [Unknown]

NARRATIVE: CASE EVENT DATE: 20211026
